FAERS Safety Report 7644545-X (Version None)
Quarter: 2011Q3

REPORT INFORMATION
  Report Type: 
  Country: None (occurrence: None)
  Receive Date: 20110729
  Receipt Date: 20110725
  Transmission Date: 20111222
  Serious: Yes (Hospitalization)
  Sender: FDA-Public Use
  Company Number: MX-SANOFI-AVENTIS-2011SA047672

PATIENT
  Age: 38 Year
  Sex: Male

DRUGS (5)
  1. INSULIN GLARGINE [Suspect]
     Route: 058
     Dates: start: 20070101, end: 20110701
  2. BI-EUGLUCON [Suspect]
     Indication: TYPE 2 DIABETES MELLITUS
     Route: 048
     Dates: start: 20070101, end: 20110701
  3. INSULIN [Suspect]
     Indication: TYPE 2 DIABETES MELLITUS
     Route: 058
     Dates: start: 20110715
  4. INSULIN GLARGINE [Suspect]
     Indication: TYPE 2 DIABETES MELLITUS
     Route: 058
     Dates: start: 20110715
  5. LORAZEPAM [Concomitant]
     Route: 048
     Dates: start: 20110101

REACTIONS (7)
  - STUPOR [None]
  - HYPERGLYCAEMIA [None]
  - VOMITING [None]
  - DYSURIA [None]
  - PYREXIA [None]
  - PYELONEPHRITIS [None]
  - COSTOVERTEBRAL ANGLE TENDERNESS [None]
